FAERS Safety Report 8529883 (Version 4)
Quarter: 2013Q2

REPORT INFORMATION
  Report Type: Spontaneous
  Country: US (occurrence: US)
  Receive Date: 20120425
  Receipt Date: 20130430
  Transmission Date: 20140414
  Serious: No
  Sender: FDA-Public Use
  Company Number: US-BIOGENIDEC-2012BI013769

PATIENT
  Age: 34 Year
  Sex: Female

DRUGS (3)
  1. TYSABRI [Suspect]
     Indication: MULTIPLE SCLEROSIS
     Route: 042
     Dates: start: 20120412
  2. AVONEX [Concomitant]
     Indication: MULTIPLE SCLEROSIS
     Route: 030
     Dates: start: 20070322
  3. GILENYA [Concomitant]

REACTIONS (18)
  - Gingival swelling [Recovered/Resolved]
  - Poor venous access [Not Recovered/Not Resolved]
  - Pain in extremity [Not Recovered/Not Resolved]
  - Lymphocyte count decreased [Recovered/Resolved]
  - Decreased immune responsiveness [Unknown]
  - Injection site bruising [Not Recovered/Not Resolved]
  - Nervousness [Not Recovered/Not Resolved]
  - Confusional state [Not Recovered/Not Resolved]
  - Anxiety [Not Recovered/Not Resolved]
  - Seasonal affective disorder [Not Recovered/Not Resolved]
  - Cough [Not Recovered/Not Resolved]
  - Weight increased [Not Recovered/Not Resolved]
  - Nasopharyngitis [Recovered/Resolved]
  - Malaise [Recovered/Resolved]
  - Herpes zoster [Recovered/Resolved]
  - Constipation [Not Recovered/Not Resolved]
  - Infusion site pain [Recovered/Resolved]
  - Chills [Not Recovered/Not Resolved]
